FAERS Safety Report 4297453-9 (Version None)
Quarter: 2004Q1

REPORT INFORMATION
  Report Type: 
  Country: None (occurrence: None)
  Receive Date: 20040213
  Receipt Date: 20031111
  Transmission Date: 20041129
  Serious: Yes (Other)
  Sender: FDA-Public Use
  Company Number: PHEH2003US10163

PATIENT
  Age: 69 Year
  Sex: Female
  Weight: 74.8 kg

DRUGS (6)
  1. DIOVAN [Suspect]
     Indication: HYPERTENSION
     Dosage: 80 MG, QD, ORAL
     Route: 048
     Dates: start: 20030825, end: 20030911
  2. PREMARIN [Concomitant]
  3. MULTIVITAMINS (RETINOL, PANTHENOL) [Concomitant]
  4. ASPIRIN [Concomitant]
  5. TUMS [Concomitant]
  6. VITAMIN E [Concomitant]

REACTIONS (3)
  - ALANINE AMINOTRANSFERASE INCREASED [None]
  - ASPARTATE AMINOTRANSFERASE INCREASED [None]
  - HEPATITIS [None]
